FAERS Safety Report 4489524-9 (Version None)
Quarter: 2004Q4

REPORT INFORMATION
  Report Type: 
  Country: None (occurrence: None)
  Receive Date: 20041028
  Receipt Date: 20041014
  Transmission Date: 20050328
  Serious: Yes (Other)
  Sender: FDA-Public Use
  Company Number: 200715

PATIENT
  Age: 48 Year
  Sex: Male
  Weight: 104.3273 kg

DRUGS (4)
  1. AVONEX [Suspect]
     Indication: MULTIPLE SCLEROSIS
     Dosage: 30 MCG IM
     Route: 030
     Dates: start: 20040101
  2. AVONEX [Suspect]
     Indication: MULTIPLE SCLEROSIS
     Dosage: 30 MCG IM
     Route: 030
     Dates: start: 20040101
  3. ZOLOFT [Concomitant]
  4. NEURONTIN [Concomitant]

REACTIONS (14)
  - BALANCE DISORDER [None]
  - CHILLS [None]
  - CONDITION AGGRAVATED [None]
  - CONTUSION [None]
  - DIFFICULTY IN WALKING [None]
  - DYSPNOEA [None]
  - FALL [None]
  - HEADACHE [None]
  - INFLUENZA LIKE ILLNESS [None]
  - LIVER DISORDER [None]
  - LIVER PALPABLE SUBCOSTAL [None]
  - MUSCLE TWITCHING [None]
  - MYALGIA [None]
  - VOMITING [None]
